FAERS Safety Report 6165838-1 (Version None)
Quarter: 2009Q2

REPORT INFORMATION
  Report Type: 
  Country: None (occurrence: None)
  Receive Date: 20090423
  Receipt Date: 20090408
  Transmission Date: 20091009
  Serious: Yes (Other)
  Sender: FDA-Public Use
  Company Number: JP-PFIZER INC-2009164628

PATIENT

DRUGS (8)
  1. MIGLITOL [Suspect]
     Indication: TYPE 2 DIABETES MELLITUS
     Dosage: 50 MG, 3X/DAY
     Route: 048
     Dates: start: 20081104, end: 20081209
  2. KINEDAK [Concomitant]
     Indication: DIABETIC NEUROPATHY
     Dosage: 150 MG, UNK
     Route: 048
     Dates: start: 19930101
  3. JUVELA NICOTINATE [Concomitant]
     Indication: DIABETIC NEUROPATHY
     Dosage: 600 MG, UNK
     Route: 048
     Dates: start: 19930101
  4. PERSANTINE [Concomitant]
     Dosage: 75 MG, UNK
     Route: 048
     Dates: start: 19930101
  5. ACINON [Concomitant]
     Indication: GASTRITIS
     Dosage: 150 MG, UNK
     Dates: start: 19930101
  6. MEVALOTIN [Concomitant]
     Indication: DYSLIPIDAEMIA
     Dosage: 10 MG, UNK
     Route: 048
     Dates: start: 20071201
  7. HUMALOG MIX [Concomitant]
     Indication: TYPE 2 DIABETES MELLITUS
     Dosage: 30 IU, UNK
     Route: 058
     Dates: start: 20071201
  8. ACARBOSE [Concomitant]
     Indication: TYPE 2 DIABETES MELLITUS
     Dosage: 300 MG, UNK
     Route: 048
     Dates: end: 20081101

REACTIONS (4)
  - ABDOMINAL PAIN [None]
  - ANOREXIA [None]
  - DIARRHOEA [None]
  - NAUSEA [None]
